FAERS Safety Report 4292736-0 (Version None)
Quarter: 2004Q1

REPORT INFORMATION
  Report Type: 
  Country: None (occurrence: None)
  Receive Date: 20040211
  Receipt Date: 20040202
  Transmission Date: 20041129
  Serious: Yes (Death, Life-Threatening, Hospitalization, Disabling)
  Sender: FDA-Public Use
  Company Number: WAES 0402USA00191

PATIENT
  Age: 88 Year
  Sex: Female

DRUGS (3)
  1. ASPIRIN [Concomitant]
  2. VIOXX [Suspect]
     Indication: ARTHRITIS
     Route: 048
     Dates: start: 20001220, end: 20010612
  3. VIOXX [Suspect]
     Route: 048
     Dates: start: 20001101, end: 20001220

REACTIONS (4)
  - ACUTE MYOCARDIAL INFARCTION [None]
  - BRADYCARDIA [None]
  - CHEST PAIN [None]
  - DUODENAL ULCER HAEMORRHAGE [None]
